FAERS Safety Report 6321600-8 (Version None)
Quarter: 2009Q3

REPORT INFORMATION
  Report Type: 
  Country: None (occurrence: None)
  Receive Date: 20090820
  Receipt Date: 20090820
  Transmission Date: 20100115
  Serious: Yes (Hospitalization)
  Sender: FDA-Public Use
  Company Number: None

PATIENT
  Age: 16 Year
  Sex: Female

DRUGS (1)
  1. LAMOTRIGINE [Suspect]

REACTIONS (4)
  - DIZZINESS [None]
  - MEDICATION ERROR [None]
  - VOMITING [None]
  - WRONG DRUG ADMINISTERED [None]
